FAERS Safety Report 9271915 (Version 5)
Quarter: 2014Q4

REPORT INFORMATION
  Report Type: Spontaneous
  Country: US (occurrence: US)
  Receive Date: 20130506
  Receipt Date: 20141112
  Transmission Date: 20150529
  Serious: No
  Sender: FDA-Public Use
  Company Number: US-009507513-1305USA001687

PATIENT
  Sex: Male
  Weight: 82 kg

DRUGS (5)
  1. ZOLOFT [Suspect]
     Active Substance: SERTRALINE HYDROCHLORIDE
     Indication: DEPRESSION
  2. PROPECIA [Suspect]
     Active Substance: FINASTERIDE
     Indication: ANDROGENETIC ALOPECIA
     Dosage: 1 MG, QD
     Route: 048
     Dates: start: 20030103, end: 2012
  3. FINASTERIDE. [Suspect]
     Active Substance: FINASTERIDE
     Dosage: 2.5 MG, UNK
     Route: 048
  4. FINASTERIDE. [Suspect]
     Active Substance: FINASTERIDE
     Indication: ALOPECIA
     Dosage: 1.25MG  QD
     Route: 048
     Dates: start: 20111207
  5. CELEXA [Suspect]
     Active Substance: CITALOPRAM HYDROBROMIDE
     Indication: DEPRESSION

REACTIONS (20)
  - Essential hypertension [Unknown]
  - Depression [Unknown]
  - Drug ineffective [Unknown]
  - Cognitive disorder [Not Recovered/Not Resolved]
  - Sensory loss [Unknown]
  - Mood swings [Unknown]
  - Conjunctival hyperaemia [Unknown]
  - Intervertebral disc protrusion [Unknown]
  - Erectile dysfunction [Unknown]
  - Depression [Unknown]
  - Acrochordon [Unknown]
  - Anxiety [Unknown]
  - Partner stress [Unknown]
  - Sexual dysfunction [Not Recovered/Not Resolved]
  - Drug ineffective [Unknown]
  - Seborrhoeic keratosis [Unknown]
  - Urethritis noninfective [Unknown]
  - Anxiety [Unknown]
  - Drug ineffective [Unknown]
  - Drug ineffective [Unknown]

NARRATIVE: CASE EVENT DATE: 20030313
